FAERS Safety Report 9442548 (Version 1)
Quarter: 2013Q3

REPORT INFORMATION
  Report Type: Spontaneous
  Country: BR (occurrence: BR)
  Receive Date: 20130806
  Receipt Date: 20130806
  Transmission Date: 20140515
  Serious: Yes (Hospitalization)
  Sender: FDA-Public Use
  Company Number: BR-PFIZER INC-2013225214

PATIENT
  Age: 72 Year
  Sex: Male
  Weight: 90 kg

DRUGS (6)
  1. LYRICA [Suspect]
     Indication: PAIN
     Dosage: 150 MG (2 CAPSULES OF 75 MG), 2X/DAY
     Route: 048
     Dates: start: 201307
  2. ANCORON [Concomitant]
     Indication: CARDIOVASCULAR DISORDER
     Dosage: 1 CAPSULE, AT MORNING
  3. APROZIDE [Concomitant]
     Indication: CARDIOVASCULAR DISORDER
     Dosage: 1 CAPSULE, AT MORNING
  4. PRESSAT [Concomitant]
     Dosage: 1 CAPSULE, AT NIGHT
  5. ROSUVASTATIN [Concomitant]
     Indication: CARDIOVASCULAR DISORDER
     Dosage: 1 CAPSULE, AT MORNING
  6. VICTOZA [Concomitant]
     Indication: DIABETES MELLITUS
     Dosage: UNK, AT MORNING

REACTIONS (2)
  - Neuritis [Unknown]
  - Sciatica [Unknown]
